APPROVED DRUG PRODUCT: CAFERGOT
Active Ingredient: CAFFEINE; ERGOTAMINE TARTRATE
Strength: 100MG;1MG
Dosage Form/Route: TABLET;ORAL
Application: A084294 | Product #001
Applicant: CHARTWELL RX SCIENCES LLC
Approved: Approved Prior to Jan 1, 1982 | RLD: Yes | RS: No | Type: DISCN